FAERS Safety Report 14849458 (Version 2)
Quarter: 2018Q3

REPORT INFORMATION
  Report Type: Spontaneous
  Country: US (occurrence: US)
  Receive Date: 20180504
  Receipt Date: 20180704
  Transmission Date: 20181010
  Serious: Yes (Other)
  Sender: FDA-Public Use
  Company Number: US-PFIZER INC-2017526305

PATIENT
  Age: 69 Year
  Sex: Female

DRUGS (17)
  1. PARAPLATIN [Concomitant]
     Active Substance: CARBOPLATIN
     Indication: CHEMOTHERAPY
     Dosage: 500 MG, UNK
     Dates: start: 20121011
  2. DOCETAXEL. [Suspect]
     Active Substance: DOCETAXEL
     Indication: BREAST CANCER
     Dosage: 130 MG, EVERY 3 WEEKS (7 CYCLES)
     Dates: start: 20121011
  3. DOCETAXEL. [Suspect]
     Active Substance: DOCETAXEL
     Dosage: 130 MG, EVERY 3 WEEKS (7 CYCLES)
     Dates: start: 20120103
  4. DOCETAXEL. [Suspect]
     Active Substance: DOCETAXEL
     Dosage: 115 MG, EVERY 3 WEEKS (7 CYCLES)
     Dates: start: 20130122, end: 20130305
  5. DOCETAXEL. [Suspect]
     Active Substance: DOCETAXEL
     Dosage: UNK, EVERY 3 WEEKS
     Dates: start: 20121011, end: 20130214
  6. TAXOTERE [Suspect]
     Active Substance: DOCETAXEL
     Indication: BREAST CANCER
     Dosage: 130 MG, EVERY 3 WEEKS (7 CYCLES)
     Dates: start: 20121011
  7. TAXOTERE [Suspect]
     Active Substance: DOCETAXEL
     Dosage: 70 MG, UNK (7 CYCLES EVERY 3 WKS)
     Dates: start: 20121120
  8. TAXOTERE [Suspect]
     Active Substance: DOCETAXEL
     Dosage: 115 MG, UNK (7 CYCLES EVERY 3 WKS)
     Dates: start: 20130122, end: 20130305
  9. TAXOTERE [Suspect]
     Active Substance: DOCETAXEL
     Dosage: UNK, EVERY 3 WEEKS
     Dates: start: 20121011, end: 20130214
  10. PARAPLATIN [Concomitant]
     Active Substance: CARBOPLATIN
     Dosage: 300 MG, UNK
     Dates: start: 20121120
  11. DOCETAXEL. [Suspect]
     Active Substance: DOCETAXEL
     Dosage: 95 MG, EVERY 3 WEEKS (7 CYCLES)
     Dates: start: 20121211
  12. DOCETAXEL. [Suspect]
     Active Substance: DOCETAXEL
     Dosage: 70 MG, EVERY 3 WEEKS (7 CYCLES)
     Dates: start: 20121120
  13. PREMPRO [Concomitant]
     Active Substance: ESTROGENS, CONJUGATED\MEDROXYPROGESTERONE ACETATE
     Dosage: UNK
     Dates: start: 1987, end: 2012
  14. TAXOTERE [Suspect]
     Active Substance: DOCETAXEL
     Dosage: 95 MG, UNK (7 CYCLES EVERY 3 WKS)
     Dates: start: 20121211
  15. PARAPLATIN [Concomitant]
     Active Substance: CARBOPLATIN
     Dosage: 500 MG, UNK
     Dates: start: 20130103, end: 20130305
  16. PARAPLATIN [Concomitant]
     Active Substance: CARBOPLATIN
     Dosage: 450 MG, UNK
     Dates: start: 20121211
  17. TAXOTERE [Suspect]
     Active Substance: DOCETAXEL
     Dosage: 130 MG, EVERY 3 WEEKS (7 CYCLES)
     Dates: start: 20120103

REACTIONS (7)
  - Condition aggravated [Unknown]
  - Hair texture abnormal [Unknown]
  - Hair disorder [Unknown]
  - Depression [Unknown]
  - Alopecia [Unknown]
  - Hair colour changes [Unknown]
  - Madarosis [Unknown]

NARRATIVE: CASE EVENT DATE: 20130905
